FAERS Safety Report 18575340 (Version 1)
Quarter: 2020Q4

REPORT INFORMATION
  Report Type: Report from Study
  Country: DE (occurrence: DE)
  Receive Date: 20201203
  Receipt Date: 20201203
  Transmission Date: 20210114
  Serious: Yes (Hospitalization, Other)
  Sender: FDA-Public Use
  Company Number: DE-TEVA-2020-DE-1854217

PATIENT
  Age: 50 Year
  Sex: Male

DRUGS (8)
  1. TARGIN [Concomitant]
     Active Substance: NALOXONE HYDROCHLORIDE\OXYCODONE HYDROCHLORIDE
     Indication: PRODUCT USED FOR UNKNOWN INDICATION
     Dosage: UNK, BID
     Route: 065
  2. IBUPROFEN. [Concomitant]
     Active Substance: IBUPROFEN
     Indication: PRODUCT USED FOR UNKNOWN INDICATION
     Dosage: 1 DF = 400 UNITS NOS, TID
     Route: 065
  3. VIGANTOLETTEN [Concomitant]
     Active Substance: CHOLECALCIFEROL
     Indication: PRODUCT USED FOR UNKNOWN INDICATION
     Dosage: UNK, QD
     Route: 065
  4. METHOTREXATE. [Suspect]
     Active Substance: METHOTREXATE
     Indication: RHEUMATOID ARTHRITIS
     Dosage: 17.5 MG, QWK
     Route: 058
     Dates: start: 201509
  5. ABATACEPT [Suspect]
     Active Substance: ABATACEPT
     Indication: RHEUMATOID ARTHRITIS
     Dosage: 125 MG, QWK
     Route: 058
     Dates: start: 20150917, end: 20170126
  6. ABATACEPT [Suspect]
     Active Substance: ABATACEPT
     Indication: PRODUCT USED FOR UNKNOWN INDICATION
     Dosage: 125 MG, QWK
     Route: 058
     Dates: start: 20150917, end: 20170126
  7. PANTOZOL [Concomitant]
     Active Substance: PANTOPRAZOLE SODIUM
     Indication: PRODUCT USED FOR UNKNOWN INDICATION
     Dosage: 1 DF = 40 UNITS NOS, UNK
     Route: 065
  8. PANTOZOL [Concomitant]
     Active Substance: PANTOPRAZOLE SODIUM
     Dosage: 1 DF = 40 UNITS NOS, UNK
     Route: 065

REACTIONS (17)
  - Enterobacter infection [Unknown]
  - Hypothyroidism [Unknown]
  - Pleural effusion [Unknown]
  - Thrombocytosis [Unknown]
  - Klebsiella infection [Unknown]
  - Pneumonia [Recovering/Resolving]
  - Tobacco abuse [Unknown]
  - Normocytic anaemia [Unknown]
  - Leukocytosis [Unknown]
  - Pulmonary fistula [Recovered/Resolved]
  - Pulmonary fibrosis [Unknown]
  - C-reactive protein decreased [Unknown]
  - Haematoma [Unknown]
  - Foreign body reaction [Unknown]
  - Pneumothorax [Recovered/Resolved]
  - Bronchiectasis [Unknown]
  - Pleurisy [Unknown]

NARRATIVE: CASE EVENT DATE: 20170123
